FAERS Safety Report 18967972 (Version 1)
Quarter: 2021Q1

REPORT INFORMATION
  Report Type: Spontaneous
  Country: US (occurrence: US)
  Receive Date: 20210304
  Receipt Date: 20210304
  Transmission Date: 20210420
  Serious: Yes (Hospitalization)
  Sender: FDA-Public Use
  Company Number: US-STRIDES ARCOLAB LIMITED-2021SP002645

PATIENT
  Sex: Female

DRUGS (7)
  1. TOCILIZUMAB. [Suspect]
     Active Substance: TOCILIZUMAB
     Indication: COVID-19
     Dosage: 8 MILLIGRAM/KILOGRAM (A TOTAL OF 2 DOSES)
     Route: 065
  2. BIVALIRUDIN. [Concomitant]
     Active Substance: BIVALIRUDIN
     Indication: COVID-19
     Dosage: UNK
     Route: 065
  3. REMDESIVIR. [Concomitant]
     Active Substance: REMDESIVIR
     Indication: COVID-19
     Dosage: 200 MILLIGRAM ON DAY 1
     Route: 065
  4. CONVALESCENT PLASMA COVID?19 [Concomitant]
     Indication: COVID-19
     Dosage: UNK, 2 UNITS
     Route: 065
  5. REMDESIVIR. [Concomitant]
     Active Substance: REMDESIVIR
     Dosage: 100 MILLIGRAM, DAILY FOR 5 DAYS
     Route: 065
  6. HYDROCORTISONE. [Suspect]
     Active Substance: HYDROCORTISONE
     Indication: COVID-19
     Dosage: 200 MILLIGRAM PER DAY
     Route: 065
  7. TOCILIZUMAB. [Suspect]
     Active Substance: TOCILIZUMAB
     Indication: INTERLEUKIN THERAPY

REACTIONS (3)
  - Enterocolitis haemorrhagic [Unknown]
  - Off label use [Unknown]
  - Cytomegalovirus viraemia [Recovered/Resolved]
